FAERS Safety Report 9304373 (Version 1)
Quarter: 2013Q2

REPORT INFORMATION
  Report Type: Spontaneous
  Country: US (occurrence: US)
  Receive Date: 20130522
  Receipt Date: 20130522
  Transmission Date: 20140414
  Serious: Yes (Hospitalization)
  Sender: FDA-Public Use
  Company Number: US-B.I. PHARMACEUTICALS,INC./RIDGEFIELD-2013-BI-13530BP

PATIENT
  Sex: Male
  Weight: 75 kg

DRUGS (5)
  1. SPIRIVA [Suspect]
     Indication: CHRONIC OBSTRUCTIVE PULMONARY DISEASE
     Dosage: 18 MCG
     Route: 055
     Dates: end: 2012
  2. AVODART [Concomitant]
     Indication: PROSTATOMEGALY
  3. FLOVENT [Concomitant]
     Indication: CHRONIC OBSTRUCTIVE PULMONARY DISEASE
     Dosage: FORMULATION-(INHALATION SOLUTION)
     Route: 055
  4. PREDNISONE [Concomitant]
     Dosage: 10 MG
     Route: 048
  5. ALBUTEROL NEBS [Concomitant]
     Indication: CHRONIC OBSTRUCTIVE PULMONARY DISEASE
     Dosage: FORMULATION-(INHALATION SOLUTION)
     Route: 055

REACTIONS (5)
  - Dysuria [Recovered/Resolved]
  - Pneumonia [Recovered/Resolved]
  - Dry mouth [Recovered/Resolved]
  - Dry throat [Recovered/Resolved]
  - Dysphonia [Recovered/Resolved]
